FAERS Safety Report 4563645-4 (Version None)
Quarter: 2005Q1

REPORT INFORMATION
  Report Type: 
  Country: None (occurrence: None)
  Receive Date: 20050121
  Receipt Date: 20041230
  Transmission Date: 20050727
  Serious: Yes (Hospitalization, Disabling)
  Sender: FDA-Public Use
  Company Number: A02200403448

PATIENT
  Age: 41 Year
  Sex: Female

DRUGS (5)
  1. PLAQUENIL [Suspect]
     Indication: SYSTEMIC LUPUS ERYTHEMATOSUS
     Dosage: 400 MG
     Route: 048
     Dates: start: 20020101, end: 20041001
  2. LAMICTAL [Suspect]
     Indication: EPILEPSY
     Dosage: 50 MG
     Route: 048
     Dates: start: 20040922, end: 20041001
  3. PREDNISONE TAB [Concomitant]
  4. CACIT D3                (CALCIUM/COLECALCIFEROL) [Concomitant]
  5. ACETAMINOPHEN [Concomitant]

REACTIONS (28)
  - ANTINUCLEAR ANTIBODY POSITIVE [None]
  - ANURIA [None]
  - CONJUNCTIVITIS [None]
  - DIARRHOEA [None]
  - DISSEMINATED INTRAVASCULAR COAGULATION [None]
  - DRUG HYPERSENSITIVITY [None]
  - DRUG RASH WITH EOSINOPHILIA AND SYSTEMIC SYMPTOMS [None]
  - HEART RATE INCREASED [None]
  - HEPATIC FAILURE [None]
  - HEPATIC NECROSIS [None]
  - HEPATITIS ACUTE [None]
  - HEPATOCELLULAR DAMAGE [None]
  - HYPERTHERMIA [None]
  - HYPOVOLAEMIA [None]
  - HYPOXIA [None]
  - MUSCLE ATROPHY [None]
  - PANCREATITIS ACUTE [None]
  - POLYNEUROPATHY [None]
  - RASH ERYTHEMATOUS [None]
  - RAYNAUD'S PHENOMENON [None]
  - RENAL FAILURE ACUTE [None]
  - RESPIRATORY ALKALOSIS [None]
  - RHABDOMYOLYSIS [None]
  - STREPTOCOCCAL SEPSIS [None]
  - SYSTEMIC LUPUS ERYTHEMATOSUS [None]
  - TACHYPNOEA [None]
  - TOXIC SKIN ERUPTION [None]
  - VOMITING [None]
